FAERS Safety Report 17462555 (Version 3)
Quarter: 2020Q2

REPORT INFORMATION
  Report Type: Report from Study
  Country: DE (occurrence: DE)
  Receive Date: 20200226
  Receipt Date: 20200402
  Transmission Date: 20200713
  Serious: Yes (Congenital Anomaly, Other)
  Sender: FDA-Public Use
  Company Number: DE-AUROBINDO-AUR-APL-2020-009453

PATIENT

DRUGS (1)
  1. LOSARTAN FILM-COATED TABLETS [Suspect]
     Active Substance: LOSARTAN
     Indication: PRODUCT USED FOR UNKNOWN INDICATION
     Dosage: UNK
     Route: 064

REACTIONS (8)
  - Venous thrombosis neonatal [Unknown]
  - Oligohydramnios [Unknown]
  - Foetal disorder [Unknown]
  - Foetal renal impairment [Unknown]
  - Congenital renal disorder [Unknown]
  - Cranial sutures widening [Unknown]
  - Angiotensin converting enzyme inhibitor foetopathy [Unknown]
  - Foetal exposure during pregnancy [Recovered/Resolved]
